FAERS Safety Report 25192004 (Version 1)
Quarter: 2025Q2

REPORT INFORMATION
  Report Type: Spontaneous
  Country: US (occurrence: US)
  Receive Date: 20250414
  Receipt Date: 20250414
  Transmission Date: 20250716
  Serious: Yes (Disabling)
  Sender: ORGANON
  Company Number: US-ORGANON-O2504USA000068

PATIENT
  Sex: Female

DRUGS (2)
  1. ZETIA [Suspect]
     Active Substance: EZETIMIBE
  2. EZETIMIBE [Suspect]
     Active Substance: EZETIMIBE

REACTIONS (5)
  - Fatigue [Unknown]
  - Asthenia [Unknown]
  - Myalgia [Unknown]
  - General physical health deterioration [Unknown]
  - Product availability issue [Unknown]
